FAERS Safety Report 9270230 (Version 2)
Quarter: 2013Q2

REPORT INFORMATION
  Report Type: Spontaneous
  Country: DK (occurrence: DK)
  Receive Date: 20130503
  Receipt Date: 20130507
  Transmission Date: 20140414
  Serious: Yes (Disabling)
  Sender: FDA-Public Use
  Company Number: DK-GLAXOSMITHKLINE-B0889009A

PATIENT
  Age: 15 Year
  Sex: Male
  Weight: 100 kg

DRUGS (1)
  1. DERMOVAT [Suspect]
     Indication: ECZEMA
     Route: 061
     Dates: start: 19900101

REACTIONS (1)
  - Chorioretinopathy [Not Recovered/Not Resolved]
